FAERS Safety Report 4580672-1 (Version None)
Quarter: 2005Q1

REPORT INFORMATION
  Report Type: 
  Country: None (occurrence: None)
  Receive Date: 20050214
  Receipt Date: 20040507
  Transmission Date: 20050727
  Serious: No
  Sender: FDA-Public Use
  Company Number: US-GLAXOSMITHKLINE-A0510217A

PATIENT
  Age: 43 Year
  Sex: Female

DRUGS (5)
  1. LAMICTAL [Suspect]
     Indication: BIPOLAR DISORDER
     Dosage: 100MG PER DAY
     Route: 048
     Dates: start: 20040401, end: 20040504
  2. RISPERDAL [Concomitant]
     Indication: BIPOLAR DISORDER
     Dosage: .5MG TWICE PER DAY
     Route: 048
     Dates: start: 20040404
  3. EFFEXOR [Concomitant]
     Indication: BIPOLAR DISORDER
     Dosage: 75MG TWICE PER DAY
     Route: 048
     Dates: start: 20030101
  4. NEVRAMIN [Concomitant]
     Indication: BIPOLAR DISORDER
     Dosage: 600MG TWICE PER DAY
     Route: 048
     Dates: start: 20020101
  5. TRILEPTAL [Concomitant]
     Indication: BIPOLAR DISORDER
     Dosage: 300MG SEE DOSAGE TEXT
     Route: 048
     Dates: start: 20030101

REACTIONS (5)
  - CHEILITIS [None]
  - HYPOAESTHESIA [None]
  - OCULAR HYPERAEMIA [None]
  - PAIN OF SKIN [None]
  - RASH [None]
